FAERS Safety Report 8195555-8 (Version None)
Quarter: 2012Q1

REPORT INFORMATION
  Report Type: 
  Country: None (occurrence: None)
  Receive Date: 20120308
  Receipt Date: 20120305
  Transmission Date: 20120608
  Serious: Yes (Disabling)
  Sender: FDA-Public Use
  Company Number: PHHY2012IT019703

PATIENT
  Sex: Female

DRUGS (2)
  1. ZOMETA [Suspect]
     Indication: BREAST CANCER
     Dosage: 4 MG, CYCLIC DOSE
     Route: 042
     Dates: start: 20020101, end: 20050101
  2. LYRICA [Concomitant]

REACTIONS (2)
  - EXPOSED BONE IN JAW [None]
  - OSTEONECROSIS OF JAW [None]
